FAERS Safety Report 9769928 (Version 1)
Quarter: 2013Q4

REPORT INFORMATION
  Report Type: Spontaneous
  Country: US (occurrence: US)
  Receive Date: 20131218
  Receipt Date: 20131218
  Transmission Date: 20140711
  Serious: No
  Sender: FDA-Public Use
  Company Number: US-VERTEX PHARMACEUTICALS INC-AE-2011-000815

PATIENT
  Age: 65 Year
  Sex: Female

DRUGS (3)
  1. INCIVEK [Suspect]
     Indication: HEPATITIS C
     Dates: start: 201107, end: 201108
  2. PEGASYS [Concomitant]
     Indication: HEPATITIS C
     Dates: start: 201107, end: 201108
  3. RIBAVIRIN [Concomitant]
     Indication: HEPATITIS C
     Dates: start: 201107, end: 201108

REACTIONS (2)
  - Fatigue [Unknown]
  - Hyperbilirubinaemia [Unknown]
